FAERS Safety Report 9334160 (Version 2)
Quarter: 2013Q3

REPORT INFORMATION
  Report Type: Spontaneous
  Country: US (occurrence: US)
  Receive Date: 20130606
  Receipt Date: 20130701
  Transmission Date: 20140515
  Serious: Yes (Other)
  Sender: FDA-Public Use
  Company Number: US-JNJFOC-20130522994

PATIENT
  Age: 61 Year
  Sex: Female

DRUGS (19)
  1. INVOKANA [Suspect]
     Indication: PRODUCT USED FOR UNKNOWN INDICATION
     Route: 048
     Dates: start: 20130508
  2. LANTUS [Concomitant]
  3. DIOVAN [Concomitant]
  4. ASPIRIN [Concomitant]
  5. PROMETHAZINE HCL [Concomitant]
  6. LASIX [Concomitant]
  7. SYNTHROID [Concomitant]
  8. LANOXIN [Concomitant]
  9. ALLOPURINOL [Concomitant]
  10. VITAMIN D [Concomitant]
  11. METFORMIN HCL [Concomitant]
  12. LOVAZA [Concomitant]
  13. CITALOPRAM HYDROBROMIDE [Concomitant]
  14. COREG [Concomitant]
  15. NEXIUM [Concomitant]
  16. LINZESS [Concomitant]
  17. TEMAZEPAM [Concomitant]
  18. JANUVIA [Concomitant]
  19. ZANTAC [Concomitant]

REACTIONS (2)
  - Blood creatinine increased [Recovered/Resolved]
  - Incorrect dose administered [Unknown]
